FAERS Safety Report 5440925-1 (Version None)
Quarter: 2007Q3

REPORT INFORMATION
  Report Type: 
  Country: None (occurrence: None)
  Receive Date: 20070831
  Receipt Date: 20070820
  Transmission Date: 20080115
  Serious: Yes (Hospitalization, Other)
  Sender: FDA-Public Use
  Company Number: US-PFIZER INC-2006114505

PATIENT
  Sex: Female

DRUGS (5)
  1. BEXTRA [Suspect]
     Indication: OSTEOARTHRITIS
  2. BEXTRA [Suspect]
     Indication: INTERVERTEBRAL DISC DISORDER
  3. BEXTRA [Suspect]
     Indication: ARTHRITIS
  4. CELEBREX [Suspect]
     Indication: ARTHRITIS
     Dates: start: 20000913, end: 20021122
  5. VIOXX [Suspect]
     Dates: start: 20000713, end: 20010729

REACTIONS (3)
  - STEVENS-JOHNSON SYNDROME [None]
  - SUBARACHNOID HAEMORRHAGE [None]
  - VENOUS THROMBOSIS [None]
